APPROVED DRUG PRODUCT: RENAGEL
Active Ingredient: SEVELAMER HYDROCHLORIDE
Strength: 800MG
Dosage Form/Route: TABLET;ORAL
Application: N021179 | Product #002 | TE Code: AB
Applicant: GENZYME CORP
Approved: Jul 12, 2000 | RLD: Yes | RS: Yes | Type: RX